FAERS Safety Report 12790490 (Version 3)
Quarter: 2016Q4

REPORT INFORMATION
  Report Type: Spontaneous
  Country: KR (occurrence: KR)
  Receive Date: 20160929
  Receipt Date: 20161104
  Transmission Date: 20170207
  Serious: Yes (Hospitalization)
  Sender: FDA-Public Use
  Company Number: KR-AMGEN-KORSP2016130657

PATIENT
  Age: 71 Year
  Sex: Female

DRUGS (10)
  1. NESP [Suspect]
     Active Substance: DARBEPOETIN ALFA
     Dosage: 40 MUG, QWK
     Route: 042
     Dates: start: 20160206, end: 20160304
  2. ZEMIGLO [Concomitant]
     Dosage: 1T , QD
     Route: 065
  3. NESP [Suspect]
     Active Substance: DARBEPOETIN ALFA
     Indication: ANAEMIA
     Dosage: 20 MUG, QWK
     Route: 042
     Dates: start: 20160113, end: 20160205
  4. NESP [Suspect]
     Active Substance: DARBEPOETIN ALFA
     Dosage: 80 MUG, QWK
     Route: 042
     Dates: start: 20160430, end: 20160602
  5. HERBEN [Concomitant]
     Dosage: 30 MG, BID
     Route: 065
  6. CLOPIDOGREL [Concomitant]
     Active Substance: CLOPIDOGREL BISULFATE
     Dosage: 1T , QD
     Route: 065
  7. ATORVASTATIN [Concomitant]
     Active Substance: ATORVASTATIN
     Dosage: 40 MG, QD
     Route: 065
  8. RENALMIN [Concomitant]
     Dosage: 1T , QD
     Route: 065
  9. NESP [Suspect]
     Active Substance: DARBEPOETIN ALFA
     Dosage: 60 MUG, QWK
     Route: 042
     Dates: start: 20160305, end: 20160429
  10. RAMIPRIL. [Concomitant]
     Active Substance: RAMIPRIL
     Dosage: 10 MG, QD
     Route: 065

REACTIONS (1)
  - Anaemia [Unknown]

NARRATIVE: CASE EVENT DATE: 20160322
